FAERS Safety Report 4831351-4 (Version None)
Quarter: 2005Q4

REPORT INFORMATION
  Report Type: 
  Country: None (occurrence: None)
  Receive Date: 20051114
  Receipt Date: 20051027
  Transmission Date: 20060501
  Serious: Yes (Death)
  Sender: FDA-Public Use
  Company Number: 2005002092

PATIENT
  Age: 15 Year
  Sex: Male

DRUGS (5)
  1. ERLOTINIB (TABLET) [Suspect]
     Indication: BRAIN NEOPLASM MALIGNANT
     Dosage: 100 MG (QD), ORAL
     Route: 048
     Dates: start: 20050825, end: 20051004
  2. ERLOTINIB (TABLET) [Suspect]
     Indication: BRAIN STEM GLIOMA
     Dosage: 100 MG (QD), ORAL
     Route: 048
     Dates: start: 20050825, end: 20051004
  3. OMEPRAZOLE [Concomitant]
  4. POTASSIUM CHLORIDE [Concomitant]
  5. DURAGESIC-100 [Concomitant]

REACTIONS (4)
  - CEREBRAL HAEMORRHAGE [None]
  - COMA [None]
  - DEPRESSED LEVEL OF CONSCIOUSNESS [None]
  - NERVOUS SYSTEM DISORDER [None]
